FAERS Safety Report 7818573-5 (Version None)
Quarter: 2011Q4

REPORT INFORMATION
  Report Type: 
  Country: None (occurrence: None)
  Receive Date: 20111017
  Receipt Date: 20111006
  Transmission Date: 20120403
  Serious: Yes (Other)
  Sender: FDA-Public Use
  Company Number: US-ASTRAZENECA-2011SE60248

PATIENT
  Age: 43 Year
  Sex: Male

DRUGS (1)
  1. SEROQUEL [Suspect]
     Route: 048

REACTIONS (5)
  - BIPOLAR DISORDER [None]
  - EPILEPSY [None]
  - BRAIN INJURY [None]
  - DIABETES MELLITUS [None]
  - INSOMNIA [None]
